APPROVED DRUG PRODUCT: PEXEVA
Active Ingredient: PAROXETINE MESYLATE
Strength: EQ 40MG BASE
Dosage Form/Route: TABLET;ORAL
Application: N021299 | Product #004
Applicant: SEBELA IRELAND LTD
Approved: Jul 3, 2003 | RLD: Yes | RS: No | Type: DISCN